FAERS Safety Report 7860750-1 (Version None)
Quarter: 2011Q4

REPORT INFORMATION
  Report Type: 
  Country: None (occurrence: None)
  Receive Date: 20111027
  Receipt Date: 20111027
  Transmission Date: 20120403
  Serious: No
  Sender: FDA-Public Use
  Company Number: US-BAYER-201022064NA

PATIENT

DRUGS (3)
  1. VIAGRA [Concomitant]
  2. LEVITRA [Suspect]
  3. CIALIS [Concomitant]

REACTIONS (1)
  - SENSORY LOSS [None]
